FAERS Safety Report 23590402 (Version 1)
Quarter: 2024Q1

REPORT INFORMATION
  Report Type: Report from Study
  Country: US (occurrence: US)
  Receive Date: 20240304
  Receipt Date: 20240304
  Transmission Date: 20240409
  Serious: Yes (Other)
  Sender: FDA-Public Use
  Company Number: US-ABBVIE-5660952

PATIENT
  Sex: Male

DRUGS (1)
  1. RINVOQ [Suspect]
     Active Substance: UPADACITINIB
     Indication: Dermatitis atopic
     Route: 048
     Dates: start: 20220815, end: 20240216

REACTIONS (5)
  - Hypertension [Not Recovered/Not Resolved]
  - Post procedural complication [Not Recovered/Not Resolved]
  - Vertigo [Not Recovered/Not Resolved]
  - Cataract [Unknown]
  - Eye disorder [Unknown]
